FAERS Safety Report 16686920 (Version 1)
Quarter: 2019Q3

REPORT INFORMATION
  Report Type: Spontaneous
  Country: GB (occurrence: GB)
  Receive Date: 20190809
  Receipt Date: 20190809
  Transmission Date: 20191004
  Serious: Yes (Other)
  Sender: FDA-Public Use
  Company Number: GB-ACCORD-150361

PATIENT
  Sex: Male

DRUGS (1)
  1. PACLITAXEL/PACLITAXEL LIPOSOME [Suspect]
     Active Substance: PACLITAXEL
     Indication: BREAST ANGIOSARCOMA
     Dosage: FULL DOSE

REACTIONS (3)
  - Drug intolerance [Unknown]
  - Neutropenia [Recovering/Resolving]
  - Fatigue [Recovering/Resolving]
